FAERS Safety Report 19034095 (Version 3)
Quarter: 2021Q2

REPORT INFORMATION
  Report Type: Report from Study
  Country: BR (occurrence: BR)
  Receive Date: 20210319
  Receipt Date: 20210609
  Transmission Date: 20210717
  Serious: Yes (Death, Hospitalization)
  Sender: FDA-Public Use
  Company Number: BR-BRISTOL-MYERS SQUIBB COMPANY-BMS-2021-020478

PATIENT
  Age: 64 Year
  Sex: Male

DRUGS (14)
  1. GLIBENCLAMIDE [Concomitant]
     Active Substance: GLYBURIDE
     Indication: DIABETES MELLITUS
     Dosage: 5 MILLIGRAM, BID
     Route: 048
     Dates: start: 20191201
  2. FERROUS SULPHATE [FERROUS SULFATE] [Concomitant]
     Active Substance: FERROUS SULFATE
     Indication: ANAEMIA
     Dosage: 300 MILLIGRAM, BID
     Route: 048
     Dates: start: 20200401
  3. BEMPEGALDESLEUKIN [Suspect]
     Active Substance: BEMPEGALDESLEUKIN
     Indication: RENAL CELL CARCINOMA
     Dosage: 0.006 MILLIGRAM/KILOGRAM (0.03 MG), Q3WK
     Route: 042
     Dates: start: 20200603
  4. METFORMIN [Concomitant]
     Active Substance: METFORMIN HYDROCHLORIDE
     Indication: DIABETES MELLITUS
     Dosage: 500 MILLIGRAM, BID
     Route: 048
     Dates: start: 20191201
  5. DIPYRONE [Concomitant]
     Active Substance: DIPYRONE
     Indication: DYSPEPSIA
     Dosage: 250 MILLIGRAM, PRN
     Route: 048
     Dates: start: 20200501
  6. ZOLPIDEM [Concomitant]
     Active Substance: ZOLPIDEM TARTRATE
     Indication: INSOMNIA
     Dosage: 10 MILLIGRAM, QD
     Route: 048
     Dates: start: 20200608
  7. OMEPRAZOLE. [Concomitant]
     Active Substance: OMEPRAZOLE
     Indication: DYSPEPSIA
     Dosage: 20 MILLIGRAM, QD
     Route: 048
     Dates: start: 20200301
  8. SCOPOLAMINE BUTYLBROMIDE [Concomitant]
     Active Substance: SCOPOLAMINE
     Indication: DYSPEPSIA
     Dosage: 10 MILLIGRAM, PRN
     Route: 048
     Dates: start: 20200501
  9. FUROSEMIDE. [Concomitant]
     Active Substance: FUROSEMIDE
     Indication: GENERALISED OEDEMA
     Dosage: 80 MILLIGRAM, QD
     Route: 048
     Dates: start: 20201229
  10. CALCIUM [Concomitant]
     Active Substance: CALCIUM
     Indication: HYPOCALCAEMIA
     Dosage: 500 MILLIGRAM, TID
     Route: 048
     Dates: start: 20201229
  11. LEVOTHYROXINE. [Concomitant]
     Active Substance: LEVOTHYROXINE
     Indication: HYPOTHYROIDISM
     Dosage: 75 MICROGRAM, QD
     Route: 048
     Dates: start: 20201229
  12. SPIRONOLACTONE. [Concomitant]
     Active Substance: SPIRONOLACTONE
     Indication: GENERALISED OEDEMA
     Dosage: 100 MILLIGRAM, QD
     Route: 048
     Dates: start: 20201229
  13. NIVOLUMAB [Suspect]
     Active Substance: NIVOLUMAB
     Indication: RENAL CELL CARCINOMA
     Dosage: 360 MILLIGRAM, Q3WK
     Route: 042
     Dates: start: 20200603
  14. SACCHAROMYCES BOULARDII LYOPHYLIZED [Concomitant]
     Indication: DIARRHOEA
     Dosage: 100 MILLIGRAM, BID
     Route: 048
     Dates: start: 20201118

REACTIONS (1)
  - Generalised oedema [Fatal]

NARRATIVE: CASE EVENT DATE: 20210222
